FAERS Safety Report 6116055-2 (Version None)
Quarter: 2009Q1

REPORT INFORMATION
  Report Type: 
  Country: None (occurrence: None)
  Receive Date: 20090314
  Receipt Date: 20081212
  Transmission Date: 20090719
  Serious: No
  Sender: FDA-Public Use
  Company Number: US-ABBOTT-08P-163-0492920-00

PATIENT
  Sex: Female
  Weight: 54.48 kg

DRUGS (3)
  1. HUMIRA [Suspect]
     Indication: RHEUMATOID ARTHRITIS
     Dates: start: 20080901
  2. ZOLPIDEM TARTRATE [Concomitant]
     Indication: INSOMNIA
  3. FIORCET [Concomitant]
     Indication: MIGRAINE

REACTIONS (2)
  - DRY SKIN [None]
  - RASH [None]
